FAERS Safety Report 10258620 (Version 2)
Quarter: 2014Q2

REPORT INFORMATION
  Report Type: Report from Study
  Country: FR (occurrence: FR)
  Receive Date: 20140625
  Receipt Date: 20140625
  Transmission Date: 20141212
  Serious: Yes (Other)
  Sender: FDA-Public Use
  Company Number: FR-BRISTOL-MYERS SQUIBB COMPANY-19977776

PATIENT
  Age: 1 Day
  Sex: Female

DRUGS (3)
  1. REYATAZ [Suspect]
     Route: 064
  2. NORVIR [Suspect]
     Route: 064
  3. EPZICOM [Suspect]
     Route: 064

REACTIONS (3)
  - Congenital hypothyroidism [Unknown]
  - Mitochondrial cytopathy [Unknown]
  - Foetal exposure during pregnancy [Recovered/Resolved]
